FAERS Safety Report 26078831 (Version 1)
Quarter: 2025Q4

REPORT INFORMATION
  Report Type: Spontaneous
  Country: US (occurrence: US)
  Receive Date: 20251123
  Receipt Date: 20251123
  Transmission Date: 20260118
  Serious: No
  Sender: GALPHARM INTERNATIONAL
  Company Number: US-PERRIGO-25US001974

PATIENT
  Sex: Female
  Weight: 65.76 kg

DRUGS (5)
  1. OPILL [Suspect]
     Active Substance: NORGESTREL
     Indication: Contraception
     Dosage: 0.075 MG, QD
     Route: 048
     Dates: start: 202412, end: 20250208
  2. OPILL [Suspect]
     Active Substance: NORGESTREL
     Dosage: 0.15 MG, SINGLE
     Route: 048
     Dates: start: 20250210, end: 20250210
  3. PLAN B [Suspect]
     Active Substance: LEVONORGESTREL
     Indication: Post coital contraception
     Dosage: ONE TABLET, SINGLE
     Route: 048
     Dates: start: 20250210, end: 20250210
  4. METFORMIN [Concomitant]
     Active Substance: METFORMIN HYDROCHLORIDE
     Indication: Weight decreased
     Dosage: UNK,QD
     Route: 065
  5. SEMAGLUTIDE [Concomitant]
     Active Substance: SEMAGLUTIDE
     Indication: Weight decreased
     Dosage: UNK, QD
     Route: 065

REACTIONS (2)
  - Product dose omission issue [Recovered/Resolved]
  - Intentional product use issue [Recovered/Resolved]

NARRATIVE: CASE EVENT DATE: 20250209
